FAERS Safety Report 13039670 (Version 3)
Quarter: 2017Q1

REPORT INFORMATION
  Report Type: Report from Study
  Country: CO (occurrence: CO)
  Receive Date: 20161219
  Receipt Date: 20170127
  Transmission Date: 20170428
  Serious: Yes (Hospitalization)
  Sender: FDA-Public Use
  Company Number: PHHY2016CO168681

PATIENT
  Sex: Male
  Weight: 71 kg

DRUGS (3)
  1. CYCLOSPORINE. [Concomitant]
     Active Substance: CYCLOSPORINE
     Indication: PRODUCT USED FOR UNKNOWN INDICATION
     Dosage: UNK
     Route: 065
  2. EXJADE [Suspect]
     Active Substance: DEFERASIROX
     Indication: SICKLE CELL ANAEMIA
     Dosage: 500 MG, BID
     Route: 048
     Dates: start: 20160817, end: 20161202
  3. EXJADE [Suspect]
     Active Substance: DEFERASIROX
     Indication: APLASIA

REACTIONS (6)
  - Disease complication [Unknown]
  - Seizure [Unknown]
  - Immune thrombocytopenic purpura [Unknown]
  - Iron overload [Unknown]
  - Diarrhoea [Unknown]
  - Headache [Unknown]
